FAERS Safety Report 9135913 (Version 2)
Quarter: 2013Q2

REPORT INFORMATION
  Report Type: Spontaneous
  Country: JP (occurrence: JP)
  Receive Date: 20130304
  Receipt Date: 20130423
  Transmission Date: 20140414
  Serious: Yes (Other)
  Sender: FDA-Public Use
  Company Number: JP-PFIZER INC-2013071264

PATIENT
  Age: 91 Year
  Sex: Female
  Weight: 43.5 kg

DRUGS (6)
  1. ZITHROMAC SR [Suspect]
     Indication: PROPHYLAXIS
     Dosage: 2 G, SINGLE
     Route: 048
     Dates: start: 20130127, end: 20130127
  2. PLETAAL [Concomitant]
     Indication: CEREBRAL INFARCTION
     Dosage: 100 MG, 2X/DAY
     Route: 048
  3. TEPRENONE [Concomitant]
     Indication: GASTRITIS
     Dosage: 50 MG, 3X/DAY
     Route: 048
  4. TRIAZOLAM [Concomitant]
     Indication: INSOMNIA
     Dosage: 0.25 MG, 1X/DAY
     Route: 048
  5. DEPAS [Concomitant]
     Indication: INSOMNIA
     Dosage: 0.5 MG, 1X/DAY
     Route: 048
  6. CEREKINON [Concomitant]
     Indication: GASTROINTESTINAL DISORDER
     Dosage: 100 MG, 1X/DAY
     Route: 048
     Dates: start: 20130127, end: 20130127

REACTIONS (5)
  - Loss of consciousness [Recovered/Resolved]
  - Presyncope [Recovered/Resolved]
  - Blood pressure decreased [Recovered/Resolved]
  - Urinary incontinence [Recovered/Resolved]
  - Faecal incontinence [Recovered/Resolved]
